FAERS Safety Report 4638484-6 (Version None)
Quarter: 2005Q2

REPORT INFORMATION
  Report Type: 
  Country: None (occurrence: None)
  Receive Date: 20050418
  Receipt Date: 20050330
  Transmission Date: 20051028
  Serious: Yes (Other)
  Sender: FDA-Public Use
  Company Number: GBS050417034

PATIENT
  Age: 53 Year
  Sex: Male

DRUGS (2)
  1. XIGRIS [Suspect]
     Dates: start: 20050327, end: 20050329
  2. ANTIBIOTICS [Concomitant]

REACTIONS (2)
  - THROMBOCYTOPENIA [None]
  - WHITE BLOOD CELL COUNT INCREASED [None]
